FAERS Safety Report 5075290-5 (Version None)
Quarter: 2006Q3

REPORT INFORMATION
  Report Type: 
  Country: None (occurrence: None)
  Receive Date: 20060809
  Receipt Date: 20060202
  Transmission Date: 20061208
  Serious: No
  Sender: FDA-Public Use
  Company Number: US-AMGEN-US167429

PATIENT
  Sex: Female

DRUGS (30)
  1. EPOGEN [Suspect]
     Indication: RENAL FAILURE CHRONIC
  2. COUMADIN [Concomitant]
  3. NORTRIPTYLINE HCL [Concomitant]
  4. MULTIVITAMIN [Concomitant]
  5. FOLIC ACID [Concomitant]
  6. NEORAL [Concomitant]
  7. PREDNISONE [Concomitant]
  8. METOPROLOL TARTRATE [Concomitant]
  9. NIFEDIPINE [Concomitant]
  10. NORVASC [Concomitant]
  11. LISINOPRIL [Concomitant]
  12. LASIX [Concomitant]
  13. POTASSIUM [Concomitant]
  14. ASPIRIN [Concomitant]
  15. PLAVIX [Concomitant]
  16. LIPITOR [Concomitant]
  17. URECHOLINE [Concomitant]
  18. REGLAN [Concomitant]
  19. PRILOSEC [Concomitant]
  20. CALCITRIOL [Concomitant]
  21. ASCORBIC ACID [Concomitant]
  22. CALCIUM WITH VITAMIN D [Concomitant]
  23. SODIUM BICARBONATE [Concomitant]
  24. CLONACEPAM [Concomitant]
  25. LACTULOSE [Concomitant]
  26. METAMUCIL [Concomitant]
  27. COLACE [Concomitant]
  28. SENNA [Concomitant]
  29. MIRALAX [Concomitant]
  30. IMODIUM [Concomitant]

REACTIONS (1)
  - THERAPEUTIC RESPONSE DECREASED [None]
